FAERS Safety Report 5988557-0 (Version None)
Quarter: 2008Q4

REPORT INFORMATION
  Report Type: 
  Country: None (occurrence: None)
  Receive Date: 20081210
  Receipt Date: 20081127
  Transmission Date: 20090506
  Serious: Yes (Other)
  Sender: FDA-Public Use
  Company Number: BR-ROCHE-599876

PATIENT
  Age: 17 Year
  Sex: Male
  Weight: 55 kg

DRUGS (2)
  1. ROACUTAN [Suspect]
     Indication: ACNE
     Dosage: STRENGTH: 10+20 MG
     Route: 048
     Dates: start: 20080912, end: 20081001
  2. ROACUTAN [Suspect]
     Dosage: STRENGTH: 20 MG LOWERED DOSAGE
     Route: 048
     Dates: start: 20080101

REACTIONS (2)
  - INTERNATIONAL NORMALISED RATIO INCREASED [None]
  - PROTHROMBIN LEVEL DECREASED [None]
